FAERS Safety Report 24976381 (Version 1)
Quarter: 2025Q1

REPORT INFORMATION
  Report Type: Spontaneous
  Country: US (occurrence: US)
  Receive Date: 20250217
  Receipt Date: 20250217
  Transmission Date: 20250409
  Serious: Yes (Death, Life-Threatening, Hospitalization)
  Sender: MYLAN
  Company Number: US-MYLANLABS-2025M1011856

PATIENT
  Age: 80 Year
  Sex: Male

DRUGS (9)
  1. METHYLPREDNISOLONE [Suspect]
     Active Substance: METHYLPREDNISOLONE
     Indication: Myasthenia gravis
     Dosage: 1000 MILLIGRAM, QD
     Route: 042
  2. PREDNISONE [Suspect]
     Active Substance: PREDNISONE
     Indication: Myasthenia gravis
     Dosage: 1 MILLIGRAM/KILOGRAM, QD
     Route: 048
  3. PREDNISONE [Suspect]
     Active Substance: PREDNISONE
     Dosage: 35 MILLIGRAM, QD
     Route: 048
  4. ECULIZUMAB [Suspect]
     Active Substance: ECULIZUMAB
     Indication: Myasthenia gravis
     Route: 042
  5. ECULIZUMAB [Suspect]
     Active Substance: ECULIZUMAB
     Dosage: 900 MILLIGRAM, QW (FOR THREE MORE DOSES)
     Route: 042
  6. ECULIZUMAB [Suspect]
     Active Substance: ECULIZUMAB
     Route: 042
  7. RAVULIZUMAB [Suspect]
     Active Substance: RAVULIZUMAB
     Indication: Myasthenia gravis
     Route: 042
  8. RAVULIZUMAB [Suspect]
     Active Substance: RAVULIZUMAB
     Route: 042
  9. CEFPODOXIME [Concomitant]
     Active Substance: CEFPODOXIME
     Indication: Prophylaxis
     Route: 065

REACTIONS (5)
  - Bladder transitional cell carcinoma [Fatal]
  - Metastatic neoplasm [Fatal]
  - Respiratory failure [Unknown]
  - Myopathy [Unknown]
  - Off label use [Unknown]
